FAERS Safety Report 9664178 (Version 1)
Quarter: 2013Q4

REPORT INFORMATION
  Report Type: Spontaneous
  Country: US (occurrence: None)
  Receive Date: 20131030
  Receipt Date: 20131030
  Transmission Date: 20140711
  Serious: Yes (Other)
  Sender: FDA-Public Use
  Company Number: None

PATIENT
  Age: 39 Year
  Sex: Female
  Weight: 75.75 kg

DRUGS (1)
  1. BUPROPRION [Suspect]
     Indication: ANXIETY
     Dates: start: 2005, end: 2008

REACTIONS (6)
  - Vertigo [None]
  - Hormone level abnormal [None]
  - Photophobia [None]
  - Migraine [None]
  - Urticaria [None]
  - Product substitution issue [None]
